FAERS Safety Report 12379645 (Version 1)
Quarter: 2016Q2

REPORT INFORMATION
  Report Type: Spontaneous
  Country: US (occurrence: US)
  Receive Date: 20160518
  Receipt Date: 20160518
  Transmission Date: 20160815
  Serious: No
  Sender: FDA-Public Use
  Company Number: US-BIOGEN-2016BI00215787

PATIENT
  Age: 56 Year
  Sex: Female

DRUGS (1)
  1. TECFIDERA [Suspect]
     Active Substance: DIMETHYL FUMARATE
     Indication: MULTIPLE SCLEROSIS
     Route: 048
     Dates: start: 20160322

REACTIONS (4)
  - Memory impairment [Not Recovered/Not Resolved]
  - Gait disturbance [Not Recovered/Not Resolved]
  - Confusional state [Unknown]
  - Dizziness [Unknown]

NARRATIVE: CASE EVENT DATE: 20160328
